FAERS Safety Report 7620843-0 (Version None)
Quarter: 2011Q3

REPORT INFORMATION
  Report Type: 
  Country: None (occurrence: None)
  Receive Date: 20110719
  Receipt Date: 20110708
  Transmission Date: 20111222
  Serious: Yes (Other)
  Sender: FDA-Public Use
  Company Number: BR-US-EMD SERONO, INC.-7070072

PATIENT
  Sex: Female

DRUGS (8)
  1. METHYLDOPA [Concomitant]
  2. REBIF [Suspect]
     Indication: PRIMARY PROGRESSIVE MULTIPLE SCLEROSIS
     Route: 058
     Dates: start: 20110323
  3. PILOCARPIN [Concomitant]
  4. MONOCORDIL [Concomitant]
  5. TOPIRAMATE [Concomitant]
  6. CLONAZEPAM [Concomitant]
  7. LASIX [Concomitant]
  8. PHYLLANTHUS NIRURI TEA [Concomitant]

REACTIONS (3)
  - RENAL IMPAIRMENT [None]
  - ESCHERICHIA URINARY TRACT INFECTION [None]
  - VAGINAL INFECTION [None]
